FAERS Safety Report 7781956-6 (Version None)
Quarter: 2011Q3

REPORT INFORMATION
  Report Type: 
  Country: None (occurrence: None)
  Receive Date: 20110927
  Receipt Date: 20110914
  Transmission Date: 20111222
  Serious: Yes (Other)
  Sender: FDA-Public Use
  Company Number: PHHY2011US63558

PATIENT
  Sex: Female
  Weight: 79.819 kg

DRUGS (3)
  1. SYNTHROID [Concomitant]
     Dosage: 112 MG DAILY
  2. PREVACID [Concomitant]
     Dosage: 30 MG, DAILY
  3. SANDOSTATIN LAR [Suspect]
     Indication: ACROMEGALY
     Dosage: 30 MG EVERY 4 WEEKS
     Route: 030
     Dates: start: 20100305

REACTIONS (4)
  - FATIGUE [None]
  - DIZZINESS [None]
  - HEADACHE [None]
  - CYSTITIS [None]
